FAERS Safety Report 14418780 (Version 1)
Quarter: 2018Q1

REPORT INFORMATION
  Report Type: Spontaneous
  Country: US (occurrence: US)
  Receive Date: 20180122
  Receipt Date: 20180122
  Transmission Date: 20180509
  Serious: No
  Sender: FDA-Public Use
  Company Number: US-TEVA-745520ACC

PATIENT
  Sex: Female

DRUGS (4)
  1. MOTION [Concomitant]
  2. FLEXERIL [Concomitant]
     Active Substance: CYCLOBENZAPRINE HYDROCHLORIDE
  3. MULTIVITAMINS [Concomitant]
     Active Substance: VITAMINS
  4. TRAZODONE HYDROCHLORIDE. [Suspect]
     Active Substance: TRAZODONE HYDROCHLORIDE
     Indication: INSOMNIA
     Route: 065

REACTIONS (8)
  - Pain [Recovered/Resolved]
  - Nausea [Recovered/Resolved]
  - Lacrimation increased [Recovered/Resolved]
  - Feeling abnormal [Recovered/Resolved]
  - Gluten sensitivity [Recovered/Resolved]
  - Migraine [Recovered/Resolved]
  - Nasal congestion [Recovered/Resolved]
  - Pyrexia [Recovered/Resolved]

NARRATIVE: CASE EVENT DATE: 20170227
